FAERS Safety Report 7504435-X (Version None)
Quarter: 2011Q2

REPORT INFORMATION
  Report Type: 
  Country: None (occurrence: None)
  Receive Date: 20110525
  Receipt Date: 20110523
  Transmission Date: 20111010
  Serious: Yes (Disabling)
  Sender: FDA-Public Use
  Company Number: GB-ABBOTT-11P-167-0715181-00

PATIENT
  Sex: Female
  Weight: 96.2 kg

DRUGS (5)
  1. FLUTICASONE PROPIONATE [Concomitant]
     Indication: ASTHMA
     Route: 045
  2. ALBUTEROL [Concomitant]
     Indication: ASTHMA
     Route: 055
  3. HUMIRA [Suspect]
     Indication: PSORIASIS
     Route: 058
     Dates: start: 20080917
  4. IRBESARTAN [Concomitant]
     Indication: BLOOD PRESSURE INCREASED
  5. AMITRIPTYLINE HCL [Concomitant]
     Indication: PAIN
     Route: 048

REACTIONS (2)
  - INTERVERTEBRAL DISC PROTRUSION [None]
  - RADICULOPATHY [None]
